FAERS Safety Report 4431030-1 (Version None)
Quarter: 2004Q3

REPORT INFORMATION
  Report Type: 
  Country: None (occurrence: None)
  Receive Date: 20040824
  Receipt Date: 20040211
  Transmission Date: 20050211
  Serious: No
  Sender: FDA-Public Use
  Company Number: US-BRISTOL-MYERS SQUIBB COMPANY-12503983

PATIENT
  Age: 56 Year
  Sex: Female
  Weight: 61 kg

DRUGS (3)
  1. MEGACE [Suspect]
     Indication: ANTIOESTROGEN THERAPY
     Route: 048
  2. FOSAMAX [Concomitant]
  3. CALCIUM [Concomitant]

REACTIONS (1)
  - WEIGHT INCREASED [None]
